FAERS Safety Report 15776368 (Version 1)
Quarter: 2018Q4

REPORT INFORMATION
  Report Type: Spontaneous
  Country: DE (occurrence: DE)
  Receive Date: 20181231
  Receipt Date: 20181231
  Transmission Date: 20190205
  Serious: Yes (Other)
  Sender: FDA-Public Use
  Company Number: DE-009507513-1812DEU011026

PATIENT
  Age: 73 Year
  Sex: Female

DRUGS (5)
  1. VITAMIN D [Concomitant]
     Active Substance: CHOLECALCIFEROL
  2. THYROID [Concomitant]
     Active Substance: LEVOTHYROXINE\LIOTHYRONINE
  3. EZETROL [Suspect]
     Active Substance: EZETIMIBE
     Indication: BLOOD CHOLESTEROL INCREASED
     Dosage: UNK
     Route: 048
     Dates: start: 201812
  4. ASPIRIN. [Concomitant]
     Active Substance: ASPIRIN
  5. TRAMADOL HYDROCHLORIDE. [Concomitant]
     Active Substance: TRAMADOL HYDROCHLORIDE

REACTIONS (1)
  - Eye haemorrhage [Not Recovered/Not Resolved]

NARRATIVE: CASE EVENT DATE: 201812
